FAERS Safety Report 21669871 (Version 1)
Quarter: 2022Q4

REPORT INFORMATION
  Report Type: Spontaneous
  Country: US (occurrence: None)
  Receive Date: 20221201
  Receipt Date: 20221201
  Transmission Date: 20230113
  Serious: Yes (Life-Threatening, Hospitalization)
  Sender: FDA-Public Use
  Company Number: None

PATIENT
  Age: 63 Year
  Sex: Male
  Weight: 122.9 kg

DRUGS (1)
  1. SARCLISA [Suspect]
     Active Substance: ISATUXIMAB-IRFC
     Indication: Plasma cell myeloma
     Dosage: OTHER FREQUENCY : WEEKLY, BIWEEKLY;?
     Route: 042

REACTIONS (2)
  - Anaphylactic reaction [None]
  - Cardiac arrest [None]

NARRATIVE: CASE EVENT DATE: 20221201
